FAERS Safety Report 8078253-0 (Version None)
Quarter: 2012Q1

REPORT INFORMATION
  Report Type: 
  Country: None (occurrence: None)
  Receive Date: 20120123
  Receipt Date: 20120109
  Transmission Date: 20120608
  Serious: Yes (Death, Hospitalization)
  Sender: FDA-Public Use
  Company Number: 2012MA000634

PATIENT
  Age: 27 Year
  Sex: Female

DRUGS (4)
  1. RISPERIDONE [Concomitant]
  2. LORAZEPAM [Concomitant]
  3. SERTRALINE HYDROCHLORIDE [Suspect]
     Indication: DEPRESSION
     Dosage: 50 MG; QD; PO
     Route: 048
  4. QUETIAPINE [Concomitant]

REACTIONS (24)
  - PARANOIA [None]
  - HALLUCINATION, AUDITORY [None]
  - WHITE BLOOD CELL COUNT INCREASED [None]
  - FALL [None]
  - BLOOD PRESSURE DECREASED [None]
  - PULMONARY EMBOLISM [None]
  - CHEST PAIN [None]
  - STARING [None]
  - AGITATION [None]
  - KETONURIA [None]
  - FEELINGS OF WORTHLESSNESS [None]
  - UNRESPONSIVE TO STIMULI [None]
  - DYSPNOEA [None]
  - CATATONIA [None]
  - MUTISM [None]
  - PSYCHOMOTOR RETARDATION [None]
  - CARDIO-RESPIRATORY ARREST [None]
  - HEART RATE INCREASED [None]
  - BLEPHAROSPASM [None]
  - DECREASED APPETITE [None]
  - POOR QUALITY SLEEP [None]
  - MENTAL STATUS CHANGES [None]
  - STUPOR [None]
  - BLOOD GLUCOSE INCREASED [None]
